FAERS Safety Report 8094138-8 (Version None)
Quarter: 2012Q1

REPORT INFORMATION
  Report Type: 
  Country: None (occurrence: None)
  Receive Date: 20120130
  Receipt Date: 20120130
  Transmission Date: 20120608
  Serious: Yes (Life-Threatening, Hospitalization)
  Sender: FDA-Public Use
  Company Number: None

PATIENT
  Age: 29 Year
  Sex: Male
  Weight: 83.914 kg

DRUGS (1)
  1. PROPECIA [Suspect]
     Dates: start: 20110526, end: 20111029

REACTIONS (7)
  - HAIR COLOUR CHANGES [None]
  - COGNITIVE DISORDER [None]
  - LOSS OF LIBIDO [None]
  - SPIDER VEIN [None]
  - ERECTILE DYSFUNCTION [None]
  - DEPRESSION [None]
  - PENILE SIZE REDUCED [None]
